FAERS Safety Report 17022733 (Version 1)
Quarter: 2019Q4

REPORT INFORMATION
  Report Type: Spontaneous
  Country: FR (occurrence: FR)
  Receive Date: 20191112
  Receipt Date: 20191112
  Transmission Date: 20200122
  Serious: Yes (Other)
  Sender: FDA-Public Use
  Company Number: FR-MYLANLABS-2019M1107714

PATIENT
  Age: 38 Year
  Sex: Female

DRUGS (5)
  1. TOLEXINE                           /00055703/ [Suspect]
     Active Substance: DOXYCYCLINE
     Indication: PRODUCT USED FOR UNKNOWN INDICATION
     Dosage: 15 DOSAGE FORM, QD
     Route: 048
     Dates: start: 20180330, end: 20180330
  2. TOLEXINE                           /00055703/ [Suspect]
     Active Substance: DOXYCYCLINE
     Dosage: 12 DOSAGE FORM, QD
     Route: 048
     Dates: start: 20180330, end: 20180330
  3. FLUOXETINE [Suspect]
     Active Substance: FLUOXETINE HYDROCHLORIDE
     Indication: PRODUCT USED FOR UNKNOWN INDICATION
     Dosage: 56 DOSAGE FORM, QD
     Route: 048
     Dates: start: 20180330, end: 20180330
  4. XANAX [Suspect]
     Active Substance: ALPRAZOLAM
     Dosage: 15 DOSAGE FORM, QD
     Route: 048
     Dates: start: 20180330, end: 20180330
  5. XANAX [Suspect]
     Active Substance: ALPRAZOLAM
     Indication: PRODUCT USED FOR UNKNOWN INDICATION
     Dosage: 15 DOSAGE FORM, QD
     Route: 048
     Dates: start: 20180330, end: 20180330

REACTIONS (4)
  - Somnolence [Recovered/Resolved]
  - Toxicity to various agents [Recovered/Resolved]
  - Headache [Recovered/Resolved]
  - Suicide attempt [Unknown]

NARRATIVE: CASE EVENT DATE: 20180330
